FAERS Safety Report 22760322 (Version 4)
Quarter: 2023Q4

REPORT INFORMATION
  Report Type: Spontaneous
  Country: US (occurrence: US)
  Receive Date: 20230728
  Receipt Date: 20231003
  Transmission Date: 20240109
  Serious: No
  Sender: FDA-Public Use
  Company Number: US-PFIZER INC-PV202300128516

PATIENT
  Age: 76 Year
  Sex: Female

DRUGS (2)
  1. IBRANCE [Suspect]
     Active Substance: PALBOCICLIB
     Dosage: 125 MG
  2. IBRANCE [Suspect]
     Active Substance: PALBOCICLIB
     Dosage: 100 MG DAILY FOR 21 DAYS ON AND 7 DAYS OFF FOR A 28 DAY CYCLE

REACTIONS (7)
  - Full blood count decreased [Not Recovered/Not Resolved]
  - Headache [Unknown]
  - Eye pain [Unknown]
  - Epistaxis [Unknown]
  - Alopecia [Unknown]
  - Fatigue [Unknown]
  - Dysphagia [Recovering/Resolving]
